FAERS Safety Report 8243264-9 (Version None)
Quarter: 2012Q1

REPORT INFORMATION
  Report Type: 
  Country: None (occurrence: None)
  Receive Date: 20120329
  Receipt Date: 20120314
  Transmission Date: 20120608
  Serious: Yes (Other)
  Sender: FDA-Public Use
  Company Number: JP-ROCHE-1025884

PATIENT
  Sex: Male

DRUGS (5)
  1. VALGANCICLOVIR [Suspect]
     Route: 048
     Dates: start: 20120118
  2. VALGANCICLOVIR [Suspect]
     Indication: CYTOMEGALOVIRUS INFECTION
     Route: 048
     Dates: start: 20111213, end: 20111222
  3. GANCICLOVIR [Suspect]
     Indication: CYTOMEGALOVIRUS INFECTION
     Route: 041
  4. FAMOTIDINE [Suspect]
     Indication: PRODUCT USED FOR UNKNOWN INDICATION
     Route: 065
  5. ROCEPHIN [Concomitant]
     Route: 051

REACTIONS (2)
  - RENAL IMPAIRMENT [None]
  - DELIRIUM [None]
